FAERS Safety Report 6670734-7 (Version None)
Quarter: 2010Q2

REPORT INFORMATION
  Report Type: 
  Country: None (occurrence: None)
  Receive Date: 20100405
  Receipt Date: 20100324
  Transmission Date: 20101027
  Serious: Yes (Hospitalization)
  Sender: FDA-Public Use
  Company Number: 009287

PATIENT
  Sex: Female

DRUGS (3)
  1. KEPPRA [Suspect]
     Indication: CONVULSION
     Dosage: 500 MG BID ORAL), (100 MG QD)
     Route: 048
     Dates: start: 20090101
  2. DEPAKOTE [Concomitant]
  3. LAMICTAL [Concomitant]

REACTIONS (7)
  - ANXIETY [None]
  - BLOOD FOLATE DECREASED [None]
  - CONVULSION [None]
  - DEPRESSION [None]
  - HALLUCINATION [None]
  - PARANOIA [None]
  - TACHYPHRENIA [None]
